FAERS Safety Report 5028600-9 (Version None)
Quarter: 2006Q2

REPORT INFORMATION
  Report Type: 
  Country: None (occurrence: None)
  Receive Date: 20060615
  Receipt Date: 20060615
  Transmission Date: 20061013
  Serious: Yes (Hospitalization)
  Sender: FDA-Public Use
  Company Number: None

PATIENT
  Age: 53 Year
  Sex: Female
  Weight: 63 kg

DRUGS (11)
  1. ADRIAMYCIN [Suspect]
     Indication: BREAST CANCER
     Dates: end: 20060201
  2. BENICAR [Concomitant]
  3. FOSAMAX [Concomitant]
  4. ASPIRIN [Concomitant]
  5. VICODIN [Concomitant]
  6. CLONAZEPAM [Concomitant]
  7. ARIMIDEX [Concomitant]
  8. AMBIEN [Concomitant]
  9. VITAMIN [Concomitant]
  10. WELLBUTRIN [Concomitant]
  11. PROZAC [Concomitant]

REACTIONS (4)
  - DYSPNOEA [None]
  - EJECTION FRACTION DECREASED [None]
  - NOCTURNAL DYSPNOEA [None]
  - PERICARDIAL EFFUSION [None]
